FAERS Safety Report 25542471 (Version 1)
Quarter: 2025Q3

REPORT INFORMATION
  Report Type: Spontaneous
  Country: JP (occurrence: JP)
  Receive Date: 20250711
  Receipt Date: 20250711
  Transmission Date: 20251021
  Serious: Yes (Hospitalization)
  Sender: BAXTER
  Company Number: JP-shionogi-202500006056

PATIENT
  Age: 69 Year
  Sex: Female
  Weight: 37.7 kg

DRUGS (4)
  1. CYCLOPHOSPHAMIDE [Suspect]
     Active Substance: CYCLOPHOSPHAMIDE
     Indication: Dermatomyositis
     Dosage: 500 MG, EVERY 2 WK
     Route: 041
     Dates: start: 20250522, end: 20250605
  2. CYCLOPHOSPHAMIDE [Suspect]
     Active Substance: CYCLOPHOSPHAMIDE
     Indication: Systemic scleroderma
  3. CYCLOPHOSPHAMIDE [Suspect]
     Active Substance: CYCLOPHOSPHAMIDE
     Indication: Rheumatic disorder
  4. AMITIZA [Suspect]
     Active Substance: LUBIPROSTONE
     Indication: Product used for unknown indication
     Dosage: 12 UG, 1 DAY
     Route: 048
     Dates: start: 20250523, end: 20250526

REACTIONS (3)
  - Large intestine infection [Recovered/Resolved]
  - Faecal occult blood positive [Recovering/Resolving]
  - Abdominal pain [Recovering/Resolving]

NARRATIVE: CASE EVENT DATE: 20250528
